FAERS Safety Report 4685760-7 (Version None)
Quarter: 2005Q2

REPORT INFORMATION
  Report Type: 
  Country: None (occurrence: None)
  Receive Date: 20050608
  Receipt Date: 20050523
  Transmission Date: 20051028
  Serious: Yes (Disabling, Other)
  Sender: FDA-Public Use
  Company Number: 2005057511

PATIENT
  Age: 78 Year
  Sex: Female
  Weight: 76.2043 kg

DRUGS (6)
  1. MACUGEN [Suspect]
     Indication: MACULAR DEGENERATION
     Dosage: (1 IN 6 WK), INTRAVITREOUS
     Dates: start: 20050331
  2. POTASSIUM CHLORIDE [Concomitant]
  3. THYROID TAB [Concomitant]
  4. VERAPAMIL [Concomitant]
  5. ALL OTHER THERAPEUTIC PRODUCTS (ALL OTHER THERAPEUTIC PRODUCTS) [Concomitant]
  6. PLETAL [Concomitant]

REACTIONS (7)
  - ANGIOPATHY [None]
  - BLINDNESS [None]
  - DETACHMENT OF RETINAL PIGMENT EPITHELIUM [None]
  - MACULAR OEDEMA [None]
  - RETINAL HAEMORRHAGE [None]
  - VISUAL ACUITY REDUCED [None]
  - VISUAL DISTURBANCE [None]
